FAERS Safety Report 21118923 (Version 2)
Quarter: 2022Q3

REPORT INFORMATION
  Report Type: Spontaneous
  Country: TH (occurrence: TH)
  Receive Date: 20220722
  Receipt Date: 20220730
  Transmission Date: 20221027
  Serious: Yes (Other)
  Sender: FDA-Public Use
  Company Number: TH-NOVARTISPH-NVSC2022TH162147

PATIENT
  Age: 40 Year
  Sex: Male

DRUGS (69)
  1. SACUBITRIL\VALSARTAN [Suspect]
     Active Substance: SACUBITRIL\VALSARTAN
     Indication: Cardiomyopathy
     Dosage: 0.25 DOSAGE FORM, QD (100)
     Route: 065
     Dates: start: 20220209
  2. SACUBITRIL\VALSARTAN [Suspect]
     Active Substance: SACUBITRIL\VALSARTAN
     Dosage: 0.25 DOSAGE FORM, BID
     Route: 065
     Dates: start: 20220223
  3. SACUBITRIL\VALSARTAN [Suspect]
     Active Substance: SACUBITRIL\VALSARTAN
     Dosage: 0.5 DOSAGE FORM, BID
     Route: 065
     Dates: start: 20220303
  4. SACUBITRIL\VALSARTAN [Suspect]
     Active Substance: SACUBITRIL\VALSARTAN
     Dosage: 0.5 DOSAGE FORM, BID
     Route: 065
     Dates: start: 20220324
  5. SACUBITRIL\VALSARTAN [Suspect]
     Active Substance: SACUBITRIL\VALSARTAN
     Dosage: 1 DOSAGE FORM, BID
     Route: 065
     Dates: start: 20220407
  6. SACUBITRIL\VALSARTAN [Suspect]
     Active Substance: SACUBITRIL\VALSARTAN
     Dosage: 2 DOSAGE FORM, BID
     Route: 065
     Dates: start: 20220421
  7. SACUBITRIL\VALSARTAN [Suspect]
     Active Substance: SACUBITRIL\VALSARTAN
     Dosage: 2 DOSAGE FORM, BID
     Route: 065
     Dates: start: 20220505
  8. SACUBITRIL\VALSARTAN [Suspect]
     Active Substance: SACUBITRIL\VALSARTAN
     Dosage: 2 DOSAGE FORM, BID
     Route: 065
     Dates: start: 20220519
  9. SACUBITRIL\VALSARTAN [Suspect]
     Active Substance: SACUBITRIL\VALSARTAN
     Dosage: 2 DOSAGE FORM, BID
     Route: 065
     Dates: start: 20220602
  10. SACUBITRIL\VALSARTAN [Suspect]
     Active Substance: SACUBITRIL\VALSARTAN
     Dosage: 2 DOSAGE FORM, BID
     Route: 065
     Dates: start: 20220616
  11. METOPROLOL [Concomitant]
     Active Substance: METOPROLOL
     Indication: Product used for unknown indication
     Dosage: 0.25 DOSAGE FORM, BID (9 FEB)
     Route: 065
  12. METOPROLOL [Concomitant]
     Active Substance: METOPROLOL
     Dosage: 0.25 DOSAGE FORM, BID (23 FEB)
     Route: 065
  13. METOPROLOL [Concomitant]
     Active Substance: METOPROLOL
     Dosage: 0.25 DOSAGE FORM, BID (3 MAR)
     Route: 065
  14. METOPROLOL [Concomitant]
     Active Substance: METOPROLOL
     Dosage: 0.25 DOSAGE FORM, BID (24 MAR)
     Route: 065
  15. METOPROLOL [Concomitant]
     Active Substance: METOPROLOL
     Dosage: 0.25 DOSAGE FORM, BID (7 APR)
     Route: 065
  16. IVABRADINE [Concomitant]
     Active Substance: IVABRADINE
     Indication: Product used for unknown indication
     Dosage: 0.5 DOSAGE FORM, BID
     Route: 065
  17. IVABRADINE [Concomitant]
     Active Substance: IVABRADINE
     Dosage: 1.5 DOSAGE FORM, BID (9 FEB)
     Route: 065
  18. IVABRADINE [Concomitant]
     Active Substance: IVABRADINE
     Dosage: 1.5 DOSAGE FORM, BID (23 FEB)
     Route: 065
  19. IVABRADINE [Concomitant]
     Active Substance: IVABRADINE
     Dosage: 1.5 DOSAGE FORM, BID (3 MAR)
     Route: 065
  20. IVABRADINE [Concomitant]
     Active Substance: IVABRADINE
     Dosage: 1.5 DOSAGE FORM, BID (24 MAR)
     Route: 065
  21. IVABRADINE [Concomitant]
     Active Substance: IVABRADINE
     Dosage: 1.5 DOSAGE FORM, BID (7 APR)
     Route: 065
  22. IVABRADINE [Concomitant]
     Active Substance: IVABRADINE
     Dosage: 1.5 DOSAGE FORM, BID (21 APR)
     Route: 065
  23. IVABRADINE [Concomitant]
     Active Substance: IVABRADINE
     Dosage: 1.5 DOSAGE FORM, BID (5 MAY)
     Route: 065
  24. IVABRADINE [Concomitant]
     Active Substance: IVABRADINE
     Dosage: 1.5 DOSAGE FORM, BID (19 MAY)
     Route: 065
  25. IVABRADINE [Concomitant]
     Active Substance: IVABRADINE
     Dosage: 1.5 DOSAGE FORM, BID (2 JUN)
     Route: 065
  26. IVABRADINE [Concomitant]
     Active Substance: IVABRADINE
     Dosage: 1.5 DOSAGE FORM, BID (16 JUN)
     Route: 065
  27. SPIRONOLACTONE [Concomitant]
     Active Substance: SPIRONOLACTONE
     Indication: Product used for unknown indication
     Dosage: 1 DOSAGE FORM, BID
     Route: 065
  28. SPIRONOLACTONE [Concomitant]
     Active Substance: SPIRONOLACTONE
     Dosage: 50 UNK, QD (9 FEB)
     Route: 065
  29. SPIRONOLACTONE [Concomitant]
     Active Substance: SPIRONOLACTONE
     Dosage: 50 UNK, QD (23 FEB)
     Route: 065
  30. SPIRONOLACTONE [Concomitant]
     Active Substance: SPIRONOLACTONE
     Dosage: 50 UNK, QD (3 MAR)
     Route: 065
  31. SPIRONOLACTONE [Concomitant]
     Active Substance: SPIRONOLACTONE
     Dosage: 50 UNK, QD (24 MAR)
     Route: 065
  32. SPIRONOLACTONE [Concomitant]
     Active Substance: SPIRONOLACTONE
     Dosage: 50 UNK, QD (7 APR)
     Route: 065
  33. SPIRONOLACTONE [Concomitant]
     Active Substance: SPIRONOLACTONE
     Dosage: 50 UNK, QD (21 APR)
     Route: 065
  34. SPIRONOLACTONE [Concomitant]
     Active Substance: SPIRONOLACTONE
     Dosage: 50 UNK, QD (5 MAY)
     Route: 065
  35. SPIRONOLACTONE [Concomitant]
     Active Substance: SPIRONOLACTONE
     Dosage: 50 UNK, QD (19 MAY)
     Route: 065
  36. SPIRONOLACTONE [Concomitant]
     Active Substance: SPIRONOLACTONE
     Dosage: 50 UNK, QD (2 JUN)
     Route: 065
  37. SPIRONOLACTONE [Concomitant]
     Active Substance: SPIRONOLACTONE
     Dosage: 50 UNK, QD (16 JUN)
     Route: 065
  38. DIGOXIN [Concomitant]
     Active Substance: DIGOXIN
     Indication: Product used for unknown indication
     Dosage: 0.5 DOSAGE FORM, QD (9 FEB)
     Route: 065
  39. DIGOXIN [Concomitant]
     Active Substance: DIGOXIN
     Dosage: 0.5 DOSAGE FORM, QD (23 FEB)
     Route: 065
  40. DIGOXIN [Concomitant]
     Active Substance: DIGOXIN
     Dosage: 0.5 DOSAGE FORM, QD (3 MAR)
     Route: 065
  41. DIGOXIN [Concomitant]
     Active Substance: DIGOXIN
     Dosage: 1 DOSAGE FORM, QD (24 MAR)
     Route: 065
  42. DIGOXIN [Concomitant]
     Active Substance: DIGOXIN
     Dosage: 1 DOSAGE FORM, QD (7 APR)
     Route: 065
  43. DIGOXIN [Concomitant]
     Active Substance: DIGOXIN
     Dosage: 0.5 DOSAGE FORM, QD (21 APR)
     Route: 065
  44. DIGOXIN [Concomitant]
     Active Substance: DIGOXIN
     Dosage: 0.5 DOSAGE FORM, QD (5 MAY)
     Route: 065
  45. DIGOXIN [Concomitant]
     Active Substance: DIGOXIN
     Dosage: 0.5 DOSAGE FORM, QD (19 MAY)
     Route: 065
  46. DIGOXIN [Concomitant]
     Active Substance: DIGOXIN
     Dosage: 0.5 DOSAGE FORM, QD (2 JUN)
     Route: 065
  47. DIGOXIN [Concomitant]
     Active Substance: DIGOXIN
     Dosage: 0.5 DOSAGE FORM, QD (16 JUN)
     Route: 065
  48. FUROSEMIDE [Concomitant]
     Active Substance: FUROSEMIDE
     Indication: Product used for unknown indication
     Dosage: 3 DOSAGE FORM, BID (2-1-0)
     Route: 065
  49. FUROSEMIDE [Concomitant]
     Active Substance: FUROSEMIDE
     Dosage: 80 UNK, QD (9 FEB)
     Route: 065
  50. FUROSEMIDE [Concomitant]
     Active Substance: FUROSEMIDE
     Dosage: 120 UNK, QD (23 FEB)
     Route: 065
  51. FUROSEMIDE [Concomitant]
     Active Substance: FUROSEMIDE
     Dosage: 80 UNK, QD (3 MAR)
     Route: 065
  52. FUROSEMIDE [Concomitant]
     Active Substance: FUROSEMIDE
     Dosage: 250 UNK, QD (24 MAR)
     Route: 065
  53. FUROSEMIDE [Concomitant]
     Active Substance: FUROSEMIDE
     Dosage: 500 UNK, QD (250 MG IF BW 60, 7 APR)
     Route: 065
  54. FUROSEMIDE [Concomitant]
     Active Substance: FUROSEMIDE
     Dosage: 250 UNK, QD (21 APR)
     Route: 065
  55. FUROSEMIDE [Concomitant]
     Active Substance: FUROSEMIDE
     Dosage: 125 UNK, QD (5 MAY)
     Route: 065
  56. FUROSEMIDE [Concomitant]
     Active Substance: FUROSEMIDE
     Dosage: 80 UNK, QD (19 MAY)
     Route: 065
  57. FUROSEMIDE [Concomitant]
     Active Substance: FUROSEMIDE
     Dosage: 40 UNK, QD (2 JUN)
     Route: 065
  58. FUROSEMIDE [Concomitant]
     Active Substance: FUROSEMIDE
     Dosage: 60 UNK, QD (16 JUN)
     Route: 065
  59. SODIUM CHLORIDE [Concomitant]
     Active Substance: SODIUM CHLORIDE
     Indication: Product used for unknown indication
     Dosage: 2 DOSAGE FORM, TID (300)
     Route: 065
  60. SODIUM CHLORIDE [Concomitant]
     Active Substance: SODIUM CHLORIDE
     Dosage: 2 DOSAGE FORM, TID (9 FEB)
     Route: 065
  61. SODIUM CHLORIDE [Concomitant]
     Active Substance: SODIUM CHLORIDE
     Dosage: 2 DOSAGE FORM, TID (23 FEB)
     Route: 065
  62. SODIUM CHLORIDE [Concomitant]
     Active Substance: SODIUM CHLORIDE
     Dosage: 2 DOSAGE FORM, BID (3 MAR)
     Route: 065
  63. SODIUM CHLORIDE [Concomitant]
     Active Substance: SODIUM CHLORIDE
     Dosage: 2 DOSAGE FORM, BID (24 MAR)
     Route: 065
  64. SODIUM CHLORIDE [Concomitant]
     Active Substance: SODIUM CHLORIDE
     Dosage: 2 DOSAGE FORM, BID (7 APR)
     Route: 065
  65. CARVEDILOL [Concomitant]
     Active Substance: CARVEDILOL
     Indication: Product used for unknown indication
     Dosage: 0.5 DOSAGE FORM, BID (6.25, 21 APR)
     Route: 065
  66. CARVEDILOL [Concomitant]
     Active Substance: CARVEDILOL
     Dosage: 1 DOSAGE FORM, BID (5 MAY)
     Route: 065
  67. CARVEDILOL [Concomitant]
     Active Substance: CARVEDILOL
     Dosage: 1.5 DOSAGE FORM, BID (19 MAY)
     Route: 065
  68. CARVEDILOL [Concomitant]
     Active Substance: CARVEDILOL
     Dosage: 1.5 DOSAGE FORM, BID (2 JUN)
     Route: 065
  69. CARVEDILOL [Concomitant]
     Active Substance: CARVEDILOL
     Dosage: 1.5 DOSAGE FORM, BID (16 JUN)
     Route: 065

REACTIONS (12)
  - Cardiac failure chronic [Unknown]
  - Heart rate increased [Unknown]
  - Weight fluctuation [Unknown]
  - Hypotension [Unknown]
  - N-terminal prohormone brain natriuretic peptide increased [Unknown]
  - Blood creatinine increased [Unknown]
  - Blood sodium decreased [Unknown]
  - Oedema [Unknown]
  - Hepatomegaly [Unknown]
  - Underdose [Unknown]
  - Inappropriate schedule of product administration [Unknown]
  - Wrong technique in product usage process [Unknown]
